FAERS Safety Report 9580062 (Version 1)
Quarter: 2013Q4

REPORT INFORMATION
  Report Type: Spontaneous
  Country: US (occurrence: US)
  Receive Date: 20131002
  Receipt Date: 20131002
  Transmission Date: 20140711
  Serious: Yes (Hospitalization)
  Sender: FDA-Public Use
  Company Number: US-SA-2013SA095675

PATIENT
  Age: 74 Year
  Sex: Female
  Weight: 72.57 kg

DRUGS (9)
  1. DDAVP [Suspect]
     Indication: DIABETES INSIPIDUS
     Route: 065
  2. COLACE [Concomitant]
  3. LYRICA [Concomitant]
  4. LASIX [Concomitant]
  5. POTASSIUM [Concomitant]
  6. LORAZEPAM [Concomitant]
  7. OMEPRAZOLE [Concomitant]
  8. CALCIUM [Concomitant]
  9. ASPIRIN [Concomitant]

REACTIONS (1)
  - Urinary tract infection [Recovered/Resolved]
